FAERS Safety Report 5218237-0 (Version None)
Quarter: 2007Q1

REPORT INFORMATION
  Report Type: 
  Country: None (occurrence: None)
  Receive Date: 20061130
  Receipt Date: 20060524
  Transmission Date: 20070707
  Serious: Yes (Other)
  Sender: FDA-Public Use
  Company Number: US200605005294

PATIENT
  Age: 18 Year
  Sex: Female

DRUGS (2)
  1. ZYPREXA [Suspect]
     Indication: BORDERLINE PERSONALITY DISORDER
     Dosage: SEE IMAGE
     Dates: start: 20040401, end: 20040101
  2. ZYPREXA [Suspect]
     Indication: BORDERLINE PERSONALITY DISORDER
     Dosage: SEE IMAGE
     Dates: start: 20040401, end: 20040101

REACTIONS (3)
  - BLOOD GLUCOSE INCREASED [None]
  - DIABETES MELLITUS INSULIN-DEPENDENT [None]
  - DIABETES MELLITUS NON-INSULIN-DEPENDENT [None]
